FAERS Safety Report 5643593-9 (Version None)
Quarter: 2008Q1

REPORT INFORMATION
  Report Type: 
  Country: None (occurrence: None)
  Receive Date: 20080131
  Receipt Date: 20071218
  Transmission Date: 20080703
  Serious: Yes (Other)
  Sender: FDA-Public Use
  Company Number: 163-21880-07121016

PATIENT
  Age: 76 Year
  Sex: Female

DRUGS (10)
  1. REVLIMID [Suspect]
     Indication: MULTIPLE MYELOMA
     Dosage: 10 MG, DAILY 21/28D, ORAL
     Route: 048
     Dates: start: 20071116, end: 20071101
  2. PREDNISONE TAB [Concomitant]
  3. MELPHALAN [Concomitant]
  4. DETROL [Concomitant]
  5. LISINOPRIL [Concomitant]
  6. HYDROCHLOROTHIAZIDE [Suspect]
  7. MORPHINE SULFATE [Concomitant]
  8. FUROSEMIDE [Concomitant]
  9. NITROGLYCERIN (GLYCERYL NITRATE) [Concomitant]
  10. PREMARIN VAGINAL CREAM(ESTROGENS CONJUGATED , CREAM0 [Concomitant]

REACTIONS (4)
  - NEUTROPENIA [None]
  - RECTAL HAEMORRHAGE [None]
  - THROMBOCYTOPENIA [None]
  - URINARY TRACT INFECTION [None]
